FAERS Safety Report 16242841 (Version 1)
Quarter: 2019Q2

REPORT INFORMATION
  Report Type: Spontaneous
  Country: CN (occurrence: CN)
  Receive Date: 20190426
  Receipt Date: 20190426
  Transmission Date: 20190711
  Serious: Yes (Other)
  Sender: FDA-Public Use
  Company Number: CN-BAXTER-2019BAX008122

PATIENT
  Age: 1 Year
  Sex: Female
  Weight: 9.5 kg

DRUGS (8)
  1. ENDOXAN [Suspect]
     Active Substance: CYCLOPHOSPHAMIDE
     Indication: ACUTE LYMPHOCYTIC LEUKAEMIA
     Dosage: DOSAGE FORM: INJECTION, CAT REGIMEN CHEMOTHERAPY, CYCLOPHOSPHAMIDE FOR INJECTION 0.44 GRAM + 0.9% NS
     Route: 041
     Dates: start: 20190211, end: 20190211
  2. CYTOSAR [Suspect]
     Active Substance: CYTARABINE
     Dosage: CAT REGIMEN CHEMOTHERAPY, CYTARABINE FOR INJECTION + 0.9% NS, DOSE RE-INTRODUCED
     Route: 058
  3. 0.9% SODIUM CHLORIDE INJECTION [Suspect]
     Active Substance: SODIUM CHLORIDE
     Dosage: CAT REGIMEN CHEMOTHERAPY, CYTARABINE FOR INJECTION 0.022 GRAM + 0.9% NS 1 ML
     Route: 058
     Dates: start: 20190211, end: 20190211
  4. 0.9% SODIUM CHLORIDE INJECTION [Suspect]
     Active Substance: SODIUM CHLORIDE
     Dosage: CAT REGIMEN CHEMOTHERAPY, CYTARABINE FOR INJECTION + 0.9% NS, DOSE RE-INTRODUCED
     Route: 058
  5. 0.9% SODIUM CHLORIDE INJECTION [Suspect]
     Active Substance: SODIUM CHLORIDE
     Indication: MEDICATION DILUTION
     Dosage: CAT REGIMEN CHEMOTHERAPY, CYCLOPHOSPHAMIDE FOR INJECTION 0.44 GRAM + 0.9% NS 100ML
     Route: 041
     Dates: start: 20190211, end: 20190211
  6. 0.9% SODIUM CHLORIDE INJECTION [Suspect]
     Active Substance: SODIUM CHLORIDE
     Dosage: CAT REGIMEN CHEMOTHERAPY, CYCLOPHOSPHAMIDE FOR INJECTION + 0.9% NS, DOSE RE-INTRODUCED
     Route: 041
  7. ENDOXAN [Suspect]
     Active Substance: CYCLOPHOSPHAMIDE
     Dosage: DOSAGE FORM: INJECTION, CAT REGIMEN CHEMOTHERAPY, CYCLOPHOSPHAMIDE FOR INJECTION + 0.9% NS, DOSE RE-
     Route: 041
  8. CYTOSAR [Suspect]
     Active Substance: CYTARABINE
     Indication: ACUTE LYMPHOCYTIC LEUKAEMIA
     Dosage: CAT REGIMEN CHEMOTHERAPY, CYTARABINE FOR INJECTION 0.022 GRAM + 0.9% NS 1 ML
     Route: 058
     Dates: start: 20190211, end: 20190211

REACTIONS (1)
  - Bone marrow failure [Recovering/Resolving]

NARRATIVE: CASE EVENT DATE: 20190215
